FAERS Safety Report 6391335-4 (Version None)
Quarter: 2009Q4

REPORT INFORMATION
  Report Type: 
  Country: None (occurrence: None)
  Receive Date: 20091007
  Receipt Date: 20091002
  Transmission Date: 20100525
  Serious: Yes (Other)
  Sender: FDA-Public Use
  Company Number: US-AMGEN-US345985

PATIENT
  Sex: Male
  Weight: 74.9 kg

DRUGS (11)
  1. NPLATE [Suspect]
     Indication: IDIOPATHIC THROMBOCYTOPENIC PURPURA
     Route: 058
     Dates: start: 20080926, end: 20090126
  2. CORTICOSTEROIDS [Concomitant]
     Route: 065
  3. RITUXIMAB [Concomitant]
     Route: 065
  4. IMMUNOGLOBULINS [Concomitant]
     Route: 042
  5. DANAZOL [Concomitant]
     Route: 065
  6. CORDARONE [Concomitant]
     Route: 048
  7. COLACE [Concomitant]
     Route: 048
  8. LASIX [Concomitant]
     Route: 048
  9. LOPRESSOR [Concomitant]
     Route: 048
  10. ACETYLSALICYLIC ACID [Concomitant]
     Route: 048
  11. CYTOXAN [Concomitant]
     Route: 048

REACTIONS (1)
  - DRUG INEFFECTIVE [None]
